FAERS Safety Report 15664596 (Version 1)
Quarter: 2018Q4

REPORT INFORMATION
  Report Type: Spontaneous
  Country: TR (occurrence: TR)
  Receive Date: 20181128
  Receipt Date: 20181128
  Transmission Date: 20190205
  Serious: Yes (Other)
  Sender: FDA-Public Use
  Company Number: TR-FTV20181119-01

PATIENT
  Age: 33 Year
  Sex: Male

DRUGS (3)
  1. FENOTEROL B INHALATION [Suspect]
     Active Substance: BECLOMETHASONE DIPROPIONATE\FORMOTEROL FUMARATE
  2. FACTIVE [Suspect]
     Active Substance: GEMIFLOXACIN MESYLATE
     Indication: ATYPICAL PNEUMONIA
     Route: 048
     Dates: start: 20181109, end: 20181111
  3. TIOFIX INHALATION [Suspect]
     Active Substance: TIOTROPIUM BROMIDE

REACTIONS (3)
  - Kounis syndrome [Recovered/Resolved]
  - Arteriospasm coronary [Recovered/Resolved]
  - Hypersensitivity [Recovered/Resolved]

NARRATIVE: CASE EVENT DATE: 20181109
